FAERS Safety Report 17896718 (Version 1)
Quarter: 2020Q2

REPORT INFORMATION
  Report Type: Spontaneous
  Country: US (occurrence: US)
  Receive Date: 20200615
  Receipt Date: 20200615
  Transmission Date: 20200714
  Serious: No
  Sender: FDA-Public Use
  Company Number: US-BAYER-2020-104692

PATIENT
  Age: 91 Year
  Sex: Male
  Weight: 136 kg

DRUGS (1)
  1. NUBEQA [Suspect]
     Active Substance: DAROLUTAMIDE
     Indication: PROSTATE CANCER
     Dosage: 600 MG, BID
     Route: 048

REACTIONS (3)
  - Product dose omission [None]
  - Memory impairment [None]
  - Muscle spasms [None]
